FAERS Safety Report 7575738-8 (Version None)
Quarter: 2011Q2

REPORT INFORMATION
  Report Type: 
  Country: None (occurrence: None)
  Receive Date: 20110628
  Receipt Date: 20110531
  Transmission Date: 20111010
  Serious: No
  Sender: FDA-Public Use
  Company Number: US-BIOGENIDEC-2011BI017022

PATIENT
  Age: 32 Year
  Sex: Female
  Weight: 54 kg

DRUGS (5)
  1. TYSABRI [Suspect]
     Indication: MULTIPLE SCLEROSIS
     Route: 042
     Dates: start: 20090901
  2. NADOLOL [Concomitant]
     Indication: MIGRAINE
     Route: 048
  3. SUMATRIPTAN SUCCINATE [Concomitant]
     Indication: MIGRAINE
     Route: 048
  4. VENLAFAXINE [Concomitant]
     Indication: MIGRAINE
     Route: 048
  5. LORTAB [Concomitant]
     Indication: PAIN

REACTIONS (3)
  - MIGRAINE WITH AURA [None]
  - MULTIPLE SCLEROSIS RELAPSE [None]
  - CROHN'S DISEASE [None]
